FAERS Safety Report 8709996 (Version 4)
Quarter: 2015Q1

REPORT INFORMATION
  Report Type: Spontaneous
  Country: US (occurrence: None)
  Receive Date: 20120720
  Receipt Date: 20150226
  Transmission Date: 20150721
  Serious: Yes (Death, Other)
  Sender: FDA-Public Use
  Company Number: TPA2012A04340

PATIENT
  Age: 56 Year
  Sex: Female
  Weight: 84.8 kg

DRUGS (19)
  1. OMEPRAZOLE. [Concomitant]
     Active Substance: OMEPRAZOLE
  2. BUPROPION HCL XL (BUPROPION HYDROCHLORIDE) [Concomitant]
  3. MEDROXYPROGESTERONE [Concomitant]
     Active Substance: MEDROXYPROGESTERONE
  4. INSULIN [Concomitant]
     Active Substance: INSULIN NOS
  5. DEXAMETHASONE /00016002/ (DEXAMETHASONE SODIUM PHOSPHATE) [Concomitant]
  6. GLYBURIDE (GLIBENCLAMIDE) [Concomitant]
     Active Substance: GLYBURIDE
  7. ESTRADIOL. [Concomitant]
     Active Substance: ESTRADIOL
  8. LEVETIRACETAM. [Concomitant]
     Active Substance: LEVETIRACETAM
  9. MJULTIVITAMINS (ASCORBIC ACID, ERGOCALCIFEROL, FOLIC ACID, NICOTINAMIDE, PANTHENOL, RETINOL, ROBOFLAVIN, THIAMINE HYDROCHLORIDE) [Concomitant]
  10. PERCOCET /00446701 (OXYCODONE HYDROCHLORIDE, OXYCODONE TEREPHTHALATE, PARACETAMOL) [Concomitant]
  11. ACTOS [Suspect]
     Active Substance: PIOGLITAZONE HYDROCHLORIDE
     Indication: TYPE 2 DIABETES MELLITUS
     Route: 048
     Dates: start: 20090915, end: 20110311
  12. GLYBURIDE (GLIBENCLAMIDE) [Concomitant]
     Active Substance: GLYBURIDE
  13. METFORMIN [Concomitant]
     Active Substance: METFORMIN HYDROCHLORIDE
  14. CALCIUM CARBONATE/VITAMIN D3 (CALCIUM CARBONATE, COLECALCIFEROL) [Concomitant]
  15. FISH OIL [Concomitant]
     Active Substance: FISH OIL
  16. TOPAMAX [Concomitant]
     Active Substance: TOPIRAMATE
  17. SIMVASTATIN. [Concomitant]
     Active Substance: SIMVASTATIN
  18. WELLBUTRIN [Concomitant]
     Active Substance: BUPROPION HYDROCHLORIDE
  19. NOVOLOG [Concomitant]
     Active Substance: INSULIN ASPART

REACTIONS (5)
  - Non-small cell lung cancer metastatic [None]
  - Cardiac arrest [None]
  - Lung cancer metastatic [None]
  - Metastases to central nervous system [None]
  - Neoplasm malignant [None]

NARRATIVE: CASE EVENT DATE: 201001
